FAERS Safety Report 14759556 (Version 1)
Quarter: 2018Q2

REPORT INFORMATION
  Report Type: Report from Study
  Country: BR (occurrence: BR)
  Receive Date: 20180413
  Receipt Date: 20180413
  Transmission Date: 20180711
  Serious: Yes (Other)
  Sender: FDA-Public Use
  Company Number: BR-ELI_LILLY_AND_COMPANY-BR201804004892

PATIENT
  Age: 57 Year
  Sex: Male

DRUGS (5)
  1. OMEPRAZOL                          /00661201/ [Concomitant]
     Active Substance: OMEPRAZOLE
     Indication: PREMEDICATION
     Dosage: 40 MG, UNK
  2. CALCIUM FOLINATE [Concomitant]
     Active Substance: LEUCOVORIN CALCIUM
     Indication: GASTROINTESTINAL CARCINOMA
     Dosage: 748 MG, 2/M
     Route: 042
  3. CETUXIMAB. [Suspect]
     Active Substance: CETUXIMAB
     Indication: GASTROINTESTINAL CARCINOMA
     Dosage: 935 MG, 2/M
     Route: 042
     Dates: start: 20170227
  4. ZOLPIDEM [Concomitant]
     Active Substance: ZOLPIDEM\ZOLPIDEM TARTRATE
     Indication: INSOMNIA
     Dosage: 10 MG, UNK
  5. TRINOTECAN [Concomitant]
     Active Substance: IRINOTECAN HYDROCHLORIDE
     Indication: GASTROINTESTINAL CARCINOMA
     Dosage: 316.6 MG, 2/M
     Route: 042

REACTIONS (2)
  - Granuloma skin [Recovering/Resolving]
  - Off label use [Unknown]

NARRATIVE: CASE EVENT DATE: 2017
